FAERS Safety Report 7819699-2 (Version None)
Quarter: 2011Q4

REPORT INFORMATION
  Report Type: 
  Country: None (occurrence: None)
  Receive Date: 20111018
  Receipt Date: 20110210
  Transmission Date: 20120403
  Serious: No
  Sender: FDA-Public Use
  Company Number: US-ASTRAZENECA-2011SE07960

PATIENT
  Age: 79 Year
  Sex: Female
  Weight: 90.7 kg

DRUGS (7)
  1. NEXIUM [Concomitant]
     Indication: GASTROOESOPHAGEAL REFLUX DISEASE
  2. SYMBICORT [Suspect]
     Indication: ASTHMA
     Dosage: 80/4.5 MCG TWO TIMES A DAY
     Route: 055
     Dates: start: 20101201
  3. EXFORGE [Concomitant]
     Indication: HYPERTENSION
  4. ASPIRIN [Concomitant]
     Indication: CARDIAC DISORDER
  5. XOPENEX [Concomitant]
     Indication: RESPIRATORY DISORDER
  6. LASIX [Concomitant]
     Indication: POLYURIA
  7. ZORCOR [Concomitant]
     Indication: HYPERCHOLESTEROLAEMIA

REACTIONS (3)
  - NERVOUSNESS [None]
  - DYSGEUSIA [None]
  - PSYCHOMOTOR HYPERACTIVITY [None]
